FAERS Safety Report 4949721-2 (Version None)
Quarter: 2006Q1

REPORT INFORMATION
  Report Type: 
  Country: None (occurrence: None)
  Receive Date: 20060315
  Receipt Date: 20060224
  Transmission Date: 20060701
  Serious: Yes (Other)
  Sender: FDA-Public Use
  Company Number: US200603000063

PATIENT
  Sex: Female

DRUGS (4)
  1. CYMBALTA [Suspect]
     Dosage: 60 MG
  2. REMERON [Concomitant]
  3. WELLBUTRIN [Concomitant]
  4. PROZAC [Concomitant]

REACTIONS (1)
  - HYPERTENSION [None]
